FAERS Safety Report 10419005 (Version 1)
Quarter: 2014Q2

REPORT INFORMATION
  Report Type: Spontaneous
  Country: US (occurrence: None)
  Receive Date: 20140617
  Receipt Date: 20140617
  Transmission Date: 20141212
  Serious: Yes (Other)
  Sender: FDA-Public Use
  Company Number: USW201310-000122

PATIENT
  Age: 76 Year
  Sex: Male
  Weight: 79 kg

DRUGS (1)
  1. APOKYN [Suspect]
     Indication: PARKINSON^S DISEASE
     Dosage: 0.2 ML (SITE: LEFT ABDOMEN), SUBCUTANEOUS?
     Route: 058
     Dates: start: 20131008, end: 20131008

REACTIONS (2)
  - Hypotension [None]
  - Nausea [None]
